FAERS Safety Report 7067278-X (Version None)
Quarter: 2010Q4

REPORT INFORMATION
  Report Type: 
  Country: None (occurrence: None)
  Receive Date: 20101028
  Receipt Date: 20101022
  Transmission Date: 20110411
  Serious: Yes (Other)
  Sender: FDA-Public Use
  Company Number: US-SHIRE-ALL1-2010-05530

PATIENT
  Sex: Female

DRUGS (1)
  1. VPRIV [Suspect]
     Indication: GAUCHER'S DISEASE
     Dosage: UNK IU/KG, UNKNOWN
     Route: 041
     Dates: start: 20101019

REACTIONS (4)
  - INFUSION RELATED REACTION [None]
  - PALPITATIONS [None]
  - PRURITUS [None]
  - URTICARIA [None]
